FAERS Safety Report 23970147 (Version 2)
Quarter: 2024Q2

REPORT INFORMATION
  Report Type: Spontaneous
  Country: JP (occurrence: JP)
  Receive Date: 20240613
  Receipt Date: 20240625
  Transmission Date: 20240716
  Serious: Yes (Disabling)
  Sender: FDA-Public Use
  Company Number: JP-DSJP-DSJ-2024-125303

PATIENT
  Age: 62 Year
  Sex: Female

DRUGS (10)
  1. BEVACIZUMAB [Suspect]
     Active Substance: BEVACIZUMAB
     Indication: Cervix carcinoma
     Dosage: 760 MILLIGRAM, QD
     Route: 042
     Dates: start: 20221118, end: 20230404
  2. KEYTRUDA [Suspect]
     Active Substance: PEMBROLIZUMAB
     Indication: Cervix carcinoma
     Dosage: 200MG/BODY/DAY, ONCE EVERY 3 WK
     Route: 042
     Dates: start: 20221118, end: 20230404
  3. PACLITAXEL [Concomitant]
     Active Substance: PACLITAXEL
     Indication: Cervix carcinoma
     Dosage: 175 MG/M2, ONCE EVERY 3 WK
     Route: 042
     Dates: start: 20221118, end: 20230404
  4. CARBOPLATIN [Concomitant]
     Active Substance: CARBOPLATIN
     Indication: Cervix carcinoma
     Dosage: 431MG/BODY/DAY, ONCE EVERY 3 WK
     Route: 042
     Dates: start: 20221118, end: 20230404
  5. LANTUS SOLOSTAR [Concomitant]
     Active Substance: INSULIN GLARGINE
     Indication: Fulminant type 1 diabetes mellitus
     Dosage: 5-12 UNITS, QD
     Route: 058
     Dates: start: 20231026
  6. HUMULIN R [Concomitant]
     Active Substance: INSULIN HUMAN
     Indication: Fulminant type 1 diabetes mellitus
     Dosage: UNK UNK, QD
     Route: 058
     Dates: start: 20231026
  7. Insulin lispro bs solostar [Concomitant]
     Indication: Fulminant type 1 diabetes mellitus
     Dosage: 4-9 UNITS, TID
     Route: 058
     Dates: start: 20231027, end: 20240105
  8. EMEND [Concomitant]
     Active Substance: APREPITANT
     Indication: Prophylaxis of nausea and vomiting
     Dosage: 125 MG, QD
     Route: 048
     Dates: start: 20221118, end: 20230315
  9. GRANISETRON HYDROCHLORIDE [Concomitant]
     Active Substance: GRANISETRON HYDROCHLORIDE
     Indication: Prophylaxis of nausea and vomiting
     Dosage: 2 MG, QD
     Route: 048
     Dates: start: 20221118, end: 20230314
  10. DECADRON [Concomitant]
     Active Substance: DEXAMETHASONE
     Indication: Prophylaxis of nausea and vomiting
     Dosage: 4 MG, BID
     Route: 048
     Dates: start: 20221119, end: 20230315

REACTIONS (2)
  - Large intestine perforation [Recovered/Resolved with Sequelae]
  - Off label use [Unknown]

NARRATIVE: CASE EVENT DATE: 20221118
